FAERS Safety Report 5374384-4 (Version None)
Quarter: 2007Q2

REPORT INFORMATION
  Report Type: 
  Country: None (occurrence: None)
  Receive Date: 20070629
  Receipt Date: 20060922
  Transmission Date: 20071010
  Serious: No
  Sender: FDA-Public Use
  Company Number: A0611835A

PATIENT
  Sex: Female

DRUGS (6)
  1. ALBUTEROL [Suspect]
     Indication: ASTHMA
     Route: 055
  2. VENTOLIN [Suspect]
     Indication: ASTHMA
     Route: 055
     Dates: start: 20050101
  3. PROVENTIL-HFA [Suspect]
  4. PULMICORT [Concomitant]
  5. LEVOXYL [Concomitant]
  6. ALLEGRA [Concomitant]

REACTIONS (5)
  - DRUG INEFFECTIVE [None]
  - HEADACHE [None]
  - HEART RATE INCREASED [None]
  - ILL-DEFINED DISORDER [None]
  - PANIC REACTION [None]
